FAERS Safety Report 4443513-9 (Version None)
Quarter: 2004Q3

REPORT INFORMATION
  Report Type: 
  Country: None (occurrence: None)
  Receive Date: 20040901
  Receipt Date: 20040817
  Transmission Date: 20050211
  Serious: Yes (Death)
  Sender: FDA-Public Use
  Company Number: 04P-163-0259449-00

PATIENT
  Age: 88 Year
  Sex: Female
  Weight: 48.5349 kg

DRUGS (6)
  1. HUMIRA [Suspect]
     Indication: RHEUMATOID ARTHRITIS
     Dosage: 40 MG, 1 IN 2 WK, SUBCUTANEOUS
     Route: 058
     Dates: start: 20030620, end: 20040401
  2. THEOPHYLLINE [Concomitant]
  3. ALBUTEROL [Concomitant]
  4. FAMOTIDINE [Concomitant]
  5. RISEDRONATE SODIUM [Concomitant]
  6. PROPACET 100 [Concomitant]

REACTIONS (1)
  - CHRONIC OBSTRUCTIVE AIRWAYS DISEASE [None]
